FAERS Safety Report 19711162 (Version 1)
Quarter: 2021Q3

REPORT INFORMATION
  Report Type: Spontaneous
  Country: US (occurrence: US)
  Receive Date: 20210817
  Receipt Date: 20210817
  Transmission Date: 20211014
  Serious: Yes (Other)
  Sender: FDA-Public Use
  Company Number: US-PFIZER INC-202101009166

PATIENT
  Age: 11 Year
  Sex: Male
  Weight: 23.7 kg

DRUGS (2)
  1. INOTUZUMAB OZOGAMICIN [Suspect]
     Active Substance: INOTUZUMAB OZOGAMICIN
     Dosage: 0.45 MG
     Dates: start: 20210716
  2. INOTUZUMAB OZOGAMICIN [Suspect]
     Active Substance: INOTUZUMAB OZOGAMICIN
     Indication: ACUTE LYMPHOCYTIC LEUKAEMIA
     Dosage: 0.7 MG
     Dates: start: 20210709

REACTIONS (3)
  - Thrombotic microangiopathy [Recovered/Resolved]
  - Cystitis haemorrhagic [Recovered/Resolved]
  - Off label use [Unknown]

NARRATIVE: CASE EVENT DATE: 20210709
